FAERS Safety Report 7774630-3 (Version None)
Quarter: 2011Q3

REPORT INFORMATION
  Report Type: 
  Country: None (occurrence: None)
  Receive Date: 20110923
  Receipt Date: 20110916
  Transmission Date: 20111222
  Serious: Yes (Other)
  Sender: FDA-Public Use
  Company Number: GB-ROCHE-803152

PATIENT
  Sex: Female

DRUGS (2)
  1. MIRCERA [Suspect]
     Dosage: INCREASED DOSE
     Route: 065
  2. MIRCERA [Suspect]
     Route: 065
     Dates: start: 20110501

REACTIONS (2)
  - HAEMOGLOBIN DECREASED [None]
  - NO THERAPEUTIC RESPONSE [None]
